FAERS Safety Report 25393109 (Version 3)
Quarter: 2025Q4

REPORT INFORMATION
  Report Type: Report from Study
  Country: EU (occurrence: EU)
  Receive Date: 20250604
  Receipt Date: 20251210
  Transmission Date: 20260117
  Serious: Yes (Other)
  Sender: AUROBINDO
  Company Number: EU-ROCHE-2712013

PATIENT
  Age: 6 Year
  Sex: Male
  Weight: 20 kg

DRUGS (13)
  1. PREDNISONE [Suspect]
     Active Substance: PREDNISONE
     Indication: Nephrotic syndrome
     Dosage: UNK UNK, EVERY OTHER DAY
  2. PREDNISONE [Suspect]
     Active Substance: PREDNISONE
     Dosage: 20 MILLIGRAM, ONCE A DAY,AFTER DARATUMUMAB INFUSION
  3. PREDNISONE [Suspect]
     Active Substance: PREDNISONE
     Dosage: 60 MILLIGRAM/SQ. METER
  4. PREDNISONE [Suspect]
     Active Substance: PREDNISONE
     Dosage: 60 MILLIGRAM/SQ. METER
  5. DARATUMUMAB [Suspect]
     Active Substance: DARATUMUMAB
     Indication: Nephrotic syndrome
     Dosage: 1000 MILLIGRAM1.73 M2 OVER 4 H
     Route: 065
  6. DARATUMUMAB [Suspect]
     Active Substance: DARATUMUMAB
     Dosage: 445 MILLIGRAM
     Route: 065
  7. METHYLPREDNISOLONE [Suspect]
     Active Substance: METHYLPREDNISOLONE
     Indication: Nephrotic syndrome
     Dosage: 1 MILLIGRAM/KILOGRAM
     Route: 065
  8. OBINUTUZUMAB [Suspect]
     Active Substance: OBINUTUZUMAB
     Indication: Nephrotic syndrome
     Dosage: 1000 MILLIGRAM1.73 M2  OVER 4 H WAS INJECTED AT DAY 0
  9. OBINUTUZUMAB [Suspect]
     Active Substance: OBINUTUZUMAB
     Dosage: 445 MILLIGRAM
  10. TACROLIMUS [Suspect]
     Active Substance: TACROLIMUS
     Indication: Nephrotic syndrome
     Dosage: UNK
  11. ACETAMINOPHEN [Concomitant]
     Active Substance: ACETAMINOPHEN
     Indication: Product used for unknown indication
     Dosage: 15 MILLIGRAM/KILOGRAM
     Route: 065
  12. DEXCHLORPHENIRAMINE [Concomitant]
     Active Substance: DEXCHLORPHENIRAMINE
     Indication: Product used for unknown indication
     Dosage: UNK
     Route: 065
  13. SULFAMETHOXAZOLE [Concomitant]
     Active Substance: SULFAMETHOXAZOLE
     Indication: Product used for unknown indication
     Dosage: 800 MILLIGRAM,0.33 WEEK
     Route: 065

REACTIONS (4)
  - Hypogammaglobulinaemia [Unknown]
  - Off label use [Recovered/Resolved]
  - Epstein-Barr virus infection [Unknown]
  - Blood immunoglobulin G decreased [Unknown]
